FAERS Safety Report 5515090-2 (Version None)
Quarter: 2007Q4

REPORT INFORMATION
  Report Type: 
  Country: None (occurrence: None)
  Receive Date: 20071113
  Receipt Date: 20061227
  Transmission Date: 20080405
  Serious: No
  Sender: FDA-Public Use
  Company Number: A0632600A

PATIENT
  Age: 52 Year
  Sex: Male

DRUGS (6)
  1. COREG [Suspect]
     Indication: EJECTION FRACTION DECREASED
     Dosage: 12.5MG TWICE PER DAY
     Route: 048
     Dates: start: 20010101
  2. ENALAPRIL MALEATE [Concomitant]
  3. ALLOPURINOL [Concomitant]
  4. ZYRTEC [Concomitant]
  5. LIPITOR [Concomitant]
  6. ASPIRIN [Concomitant]

REACTIONS (6)
  - DECREASED APPETITE [None]
  - DIZZINESS [None]
  - FEELING ABNORMAL [None]
  - MOTION SICKNESS [None]
  - THERAPEUTIC RESPONSE UNEXPECTED [None]
  - WEIGHT LOSS POOR [None]
